FAERS Safety Report 9711311 (Version 1)
Quarter: 2013Q4

REPORT INFORMATION
  Report Type: Spontaneous
  Country: US (occurrence: US)
  Receive Date: 20131126
  Receipt Date: 20131126
  Transmission Date: 20140711
  Serious: No
  Sender: FDA-Public Use
  Company Number: US-BRISTOL-MYERS SQUIBB COMPANY-18749150

PATIENT
  Sex: Male

DRUGS (5)
  1. BYDUREON [Suspect]
     Dosage: INJECTION
  2. KOMBIGLYZE XR [Concomitant]
     Dosage: 1DF:2.5/1000
  3. TRILIPIX [Concomitant]
  4. CRESTOR [Concomitant]
  5. LISINOPRIL [Concomitant]

REACTIONS (1)
  - Injection site reaction [Unknown]
